FAERS Safety Report 9123436 (Version 1)
Quarter: 2013Q1

REPORT INFORMATION
  Report Type: Spontaneous
  Country: FR (occurrence: FR)
  Receive Date: 20130227
  Receipt Date: 20130227
  Transmission Date: 20140127
  Serious: Yes (Death, Life-Threatening, Hospitalization)
  Sender: FDA-Public Use
  Company Number: FR-ELI_LILLY_AND_COMPANY-FR201302006060

PATIENT
  Age: 77 Year
  Sex: Male

DRUGS (1)
  1. FORSTEO [Suspect]
     Dosage: 20 UG, QD
     Route: 058
     Dates: start: 20110712, end: 20120709

REACTIONS (2)
  - Cerebrovascular accident [Fatal]
  - Cerebral haematoma [Fatal]
